FAERS Safety Report 24989666 (Version 1)
Quarter: 2025Q1

REPORT INFORMATION
  Report Type: Spontaneous
  Country: AU (occurrence: AU)
  Receive Date: 20250220
  Receipt Date: 20250220
  Transmission Date: 20250409
  Serious: Yes (Other)
  Sender: ACCORD
  Company Number: None

PATIENT
  Age: 77 Year
  Sex: Male

DRUGS (1)
  1. CARBOPLATIN [Suspect]
     Active Substance: CARBOPLATIN
     Indication: Product used for unknown indication

REACTIONS (12)
  - Oxygen saturation decreased [Unknown]
  - Hypoxia [Unknown]
  - Agitation [Unknown]
  - Back pain [Unknown]
  - Chest pain [Unknown]
  - Crepitations [Unknown]
  - Dyspnoea [Unknown]
  - Flushing [Unknown]
  - Hyperhidrosis [Unknown]
  - Hypotension [Unknown]
  - Malaise [Unknown]
  - Tachycardia [Unknown]
